FAERS Safety Report 18062522 (Version 1)
Quarter: 2020Q3

REPORT INFORMATION
  Report Type: Spontaneous
  Country: GB (occurrence: GB)
  Receive Date: 20200724
  Receipt Date: 20200724
  Transmission Date: 20201103
  Serious: Yes (Hospitalization)
  Sender: FDA-Public Use
  Company Number: GB-TEVA-2020-GB-1803906

PATIENT
  Age: 56 Year
  Sex: Male

DRUGS (1)
  1. CISPLATIN. [Suspect]
     Active Substance: CISPLATIN
     Route: 042

REACTIONS (3)
  - Dyspepsia [Recovering/Resolving]
  - Odynophagia [Recovering/Resolving]
  - Nausea [Recovering/Resolving]
